FAERS Safety Report 11337516 (Version 1)
Quarter: 2015Q3

REPORT INFORMATION
  Report Type: Spontaneous
  Country: US (occurrence: US)
  Receive Date: 20150803
  Receipt Date: 20150803
  Transmission Date: 20151125
  Serious: Yes (Hospitalization, Other)
  Sender: FDA-Public Use
  Company Number: US-ELI_LILLY_AND_COMPANY-US200705001140

PATIENT
  Age: 29 Year
  Sex: Female
  Weight: 56.69 kg

DRUGS (2)
  1. ZYPREXA [Suspect]
     Active Substance: OLANZAPINE
     Dosage: 5 MG, UNK
  2. ZYPREXA [Suspect]
     Active Substance: OLANZAPINE
     Indication: ANXIETY
     Dosage: 20 MG, UNK
     Dates: start: 200005, end: 200606

REACTIONS (14)
  - Diabetic ketoacidosis [Unknown]
  - Cerebrovascular accident [Recovered/Resolved]
  - Polyuria [Unknown]
  - Diabetes mellitus [Not Recovered/Not Resolved]
  - Hypoglycaemia [Unknown]
  - Off label use [Unknown]
  - Hyperglycaemia [Unknown]
  - Pancreatitis [Not Recovered/Not Resolved]
  - Polydipsia [Unknown]
  - Cerebrovascular disorder [Unknown]
  - Cerebrovascular accident [Recovered/Resolved]
  - Acetonaemia [Unknown]
  - Vision blurred [Unknown]
  - Ketonuria [Unknown]

NARRATIVE: CASE EVENT DATE: 2002
